FAERS Safety Report 4938415-5 (Version None)
Quarter: 2006Q1

REPORT INFORMATION
  Report Type: 
  Country: None (occurrence: None)
  Receive Date: 20060302
  Receipt Date: 20060217
  Transmission Date: 20060701
  Serious: Yes (Hospitalization)
  Sender: FDA-Public Use
  Company Number: 2006JP000083

PATIENT
  Age: 68 Year
  Sex: Female

DRUGS (12)
  1. PROGRAF [Suspect]
     Indication: RHEUMATOID ARTHRITIS
     Dosage: 3 MG, D, ORAL
     Route: 048
     Dates: start: 20051219
  2. PREDNISOLONE [Suspect]
     Indication: RHEUMATOID ARTHRITIS
     Dosage: 2.5 MG, BID,  ORAL
     Route: 048
     Dates: start: 20051219
  3. COVERSYL (PERINDOPRIL ERBUMINE) TABLET [Concomitant]
  4. SUNRYTHM (PILSICAINIDE HYDROCHLORIDE) CAPSULE [Concomitant]
  5. WARFARIN (WARFARIN) TABLET [Concomitant]
  6. URSO (URSODEOXYCHOLIC ACID) TABLET [Concomitant]
  7. GASTER D TABLET [Concomitant]
  8. AZULFIDINE EN TABLET [Concomitant]
  9. ORCL (ACTARIT) TABLET [Concomitant]
  10. MOBIC [Concomitant]
  11. BENET (RISEDRONATE SODIUM) TABLET [Concomitant]
  12. METALCAPTASE TABLET [Concomitant]

REACTIONS (2)
  - SIALOADENITIS [None]
  - SJOGREN'S SYNDROME [None]
